FAERS Safety Report 7234546-8 (Version None)
Quarter: 2011Q1

REPORT INFORMATION
  Report Type: 
  Country: None (occurrence: None)
  Receive Date: 20110119
  Receipt Date: 20110114
  Transmission Date: 20110831
  Serious: Yes (Other)
  Sender: FDA-Public Use
  Company Number: US-BAYER-2011-004963

PATIENT

DRUGS (1)
  1. AVELOX [Suspect]
     Dosage: UNK
     Route: 048
     Dates: start: 20110111

REACTIONS (1)
  - ANAPHYLACTIC REACTION [None]
